FAERS Safety Report 8448161-1 (Version None)
Quarter: 2012Q2

REPORT INFORMATION
  Report Type: 
  Country: None (occurrence: None)
  Receive Date: 20120613
  Receipt Date: 20120529
  Transmission Date: 20120825
  Serious: Yes (Other)
  Sender: FDA-Public Use
  Company Number: DSU-2012-04341

PATIENT
  Age: 73 Year
  Sex: Male
  Weight: 109.7705 kg

DRUGS (5)
  1. WELCHOL [Suspect]
     Indication: BILE ACID MALABSORPTION
     Dosage: PER ORAL
     Route: 048
  2. AZOR [Suspect]
     Indication: HYPERTENSION
     Dosage: 5/40MG (QD), PER ORAL
     Route: 048
     Dates: start: 20120301
  3. TRIBENZOR [Suspect]
     Indication: HYPERTENSION
     Dosage: PER ORAL
     Route: 048
     Dates: end: 20120301
  4. SIMVASTATIN [Concomitant]
  5. BENICAR [Concomitant]

REACTIONS (7)
  - PAIN IN EXTREMITY [None]
  - NEUROPATHY PERIPHERAL [None]
  - ARRHYTHMIA [None]
  - DIARRHOEA [None]
  - VENOUS OCCLUSION [None]
  - CHEST DISCOMFORT [None]
  - MUSCLE SPASMS [None]
